FAERS Safety Report 16307696 (Version 3)
Quarter: 2019Q3

REPORT INFORMATION
  Report Type: Report from Study
  Country: GB (occurrence: GB)
  Receive Date: 20190514
  Receipt Date: 20190801
  Transmission Date: 20191004
  Serious: Yes (Hospitalization, Disabling)
  Sender: FDA-Public Use
  Company Number: GB-ROCHE-2162065

PATIENT
  Sex: Female

DRUGS (2)
  1. ROACTEMRA [Suspect]
     Active Substance: TOCILIZUMAB
     Indication: RHEUMATOID ARTHRITIS
     Route: 058
     Dates: start: 20180314, end: 201805
  2. PREDNISOLONE. [Concomitant]
     Active Substance: PREDNISOLONE
     Dosage: 5-10 MG
     Route: 048

REACTIONS (7)
  - Tenderness [Unknown]
  - Joint stiffness [Unknown]
  - Condition aggravated [Unknown]
  - Pain in extremity [Unknown]
  - Neck pain [Unknown]
  - Hip fracture [Recovered/Resolved]
  - Pain [Unknown]
